FAERS Safety Report 10086852 (Version 3)
Quarter: 2014Q2

REPORT INFORMATION
  Report Type: Report from Study
  Country: US (occurrence: US)
  Receive Date: 20140418
  Receipt Date: 20140520
  Transmission Date: 20141212
  Serious: Yes (Other)
  Sender: FDA-Public Use
  Company Number: US-TEVA-476809USA

PATIENT
  Age: 27 Year
  Sex: Female

DRUGS (6)
  1. CLARAVIS [Suspect]
     Dosage: 3.3333 MILLIGRAM DAILY;
     Dates: start: 20130517, end: 20140404
  2. CLARAVIS [Suspect]
     Dates: start: 20120114
  3. CLARAVIS [Suspect]
     Dates: start: 20101022
  4. CLARAVIS [Suspect]
     Dates: start: 20070405
  5. BIRTH CONTROL PILLS [Concomitant]
  6. MACROBID [Concomitant]
     Indication: URINARY TRACT INFECTION

REACTIONS (1)
  - Unintended pregnancy [Recovered/Resolved]
